FAERS Safety Report 6992286-4 (Version None)
Quarter: 2010Q3

REPORT INFORMATION
  Report Type: 
  Country: None (occurrence: None)
  Receive Date: 20100917
  Receipt Date: 20100909
  Transmission Date: 20110219
  Serious: Yes (Hospitalization)
  Sender: FDA-Public Use
  Company Number: ES-PFIZER INC-2010114492

PATIENT
  Age: 66 Year
  Sex: Female

DRUGS (1)
  1. SUNITINIB MALATE [Suspect]
     Indication: GLIOBLASTOMA
     Dosage: 37.5 MG, 1X/DAY
     Route: 048
     Dates: start: 20100719, end: 20100902

REACTIONS (1)
  - ENCEPHALOPATHY [None]
